FAERS Safety Report 23861439 (Version 2)
Quarter: 2024Q4

REPORT INFORMATION
  Report Type: Spontaneous
  Country: ES (occurrence: ES)
  Receive Date: 20240516
  Receipt Date: 20241125
  Transmission Date: 20250114
  Serious: Yes (Other)
  Sender: NOVITIUM PHARMA
  Company Number: ES-NOVITIUMPHARMA-2024ESNVP00833

PATIENT
  Age: 57 Year
  Sex: Male

DRUGS (7)
  1. PREDNISONE [Suspect]
     Active Substance: PREDNISONE
     Indication: Subcorneal pustular dermatosis
  2. DAPSONE [Suspect]
     Active Substance: DAPSONE
     Indication: Subcorneal pustular dermatosis
  3. METHOTREXATE [Concomitant]
     Active Substance: METHOTREXATE
     Indication: Subcorneal pustular dermatosis
  4. ISOTRETINOIN [Concomitant]
     Active Substance: ISOTRETINOIN
     Indication: Subcorneal pustular dermatosis
  5. ACITRETIN [Concomitant]
     Active Substance: ACITRETIN
     Indication: Subcorneal pustular dermatosis
  6. MYCOPHENOLATE MOFETIL [Concomitant]
     Active Substance: MYCOPHENOLATE MOFETIL
     Indication: Subcorneal pustular dermatosis
  7. RITUXIMAB [Concomitant]
     Active Substance: RITUXIMAB
     Indication: Subcorneal pustular dermatosis
     Dosage: AT TWO WEEK INTERVALS (2 INFUSIONS)

REACTIONS (3)
  - Haemolysis [Recovering/Resolving]
  - Methaemoglobinaemia [Recovering/Resolving]
  - Drug ineffective [Unknown]
